FAERS Safety Report 22713036 (Version 2)
Quarter: 2023Q4

REPORT INFORMATION
  Report Type: Spontaneous
  Country: US (occurrence: US)
  Receive Date: 20230717
  Receipt Date: 20231218
  Transmission Date: 20240110
  Serious: Yes (Hospitalization, Other)
  Sender: FDA-Public Use
  Company Number: US-MLMSERVICE-20230628-4376123-1

PATIENT

DRUGS (2)
  1. GABAPENTIN [Suspect]
     Active Substance: GABAPENTIN
     Indication: Back pain
     Dosage: 200 MG TWICE DAILY WITHOUT A TAPER
     Route: 065
  2. GABAPENTIN [Suspect]
     Active Substance: GABAPENTIN
     Dosage: LONG-TERM GABAPENTIN USAGE/600 MG THREE TIMES A DAY
     Route: 065

REACTIONS (26)
  - Tinnitus [Recovered/Resolved]
  - Pain [Recovered/Resolved]
  - Hyperhidrosis [Recovered/Resolved]
  - Pseudostroke [Recovered/Resolved]
  - Photophobia [Recovered/Resolved]
  - Speech disorder [Recovered/Resolved]
  - Aphasia [Recovered/Resolved]
  - Cerebellar ataxia [Recovered/Resolved]
  - Visual impairment [Recovered/Resolved]
  - Anxiety [Recovered/Resolved]
  - Balance disorder [Recovered/Resolved]
  - Memory impairment [Recovered/Resolved]
  - Fine motor skill dysfunction [Recovered/Resolved]
  - Drug withdrawal headache [Recovered/Resolved]
  - Insomnia [Recovered/Resolved]
  - Confusional state [Recovered/Resolved]
  - Mobility decreased [Recovered/Resolved]
  - Dizziness postural [Recovered/Resolved]
  - Cognitive disorder [Recovered/Resolved]
  - Slow response to stimuli [Recovered/Resolved]
  - Drug withdrawal syndrome [Recovered/Resolved]
  - Ataxia [Recovered/Resolved]
  - Dysarthria [Recovered/Resolved]
  - Vision blurred [Recovered/Resolved]
  - Agitation [Recovered/Resolved]
  - Nausea [Recovered/Resolved]
